FAERS Safety Report 9526608 (Version 2)
Quarter: 2014Q1

REPORT INFORMATION
  Report Type: Spontaneous
  Country: CH (occurrence: CH)
  Receive Date: 20130916
  Receipt Date: 20140124
  Transmission Date: 20141002
  Serious: Yes (Hospitalization)
  Sender: FDA-Public Use
  Company Number: PHHY2013CH098983

PATIENT
  Age: 77 Year
  Sex: Female

DRUGS (4)
  1. PRAVASTATIN [Suspect]
     Dosage: 0.5 DF, QD
     Dates: start: 201006, end: 201010
  2. MARCOUMAR [Concomitant]
  3. METO ZEROK [Concomitant]
  4. SYMFONA N [Concomitant]

REACTIONS (1)
  - Tendon rupture [Recovered/Resolved]
